FAERS Safety Report 4455406-1 (Version None)
Quarter: 2004Q3

REPORT INFORMATION
  Report Type: 
  Country: None (occurrence: None)
  Receive Date: 20040830
  Receipt Date: 20040420
  Transmission Date: 20050211
  Serious: No
  Sender: FDA-Public Use
  Company Number: 204671

PATIENT
  Age: 63 Year
  Sex: Female
  Weight: 38.5 kg

DRUGS (7)
  1. XOLAIR [Suspect]
     Indication: ASTHMA
     Dosage: 150 MG,Q4W,SUBCUTANEOUS
     Route: 058
     Dates: start: 20040113, end: 20040212
  2. PREDNISONE [Concomitant]
  3. PREVACID [Concomitant]
  4. ACTONEL [Concomitant]
  5. PREMARIN [Concomitant]
  6. DYAZIDE (TRIAMTERENE, HYDROCHLOROTHIAZIDE) [Concomitant]
  7. ALBUTEROL NEBULIZER (ALBUTEROL, ALBUTEROL SULFATE) [Concomitant]

REACTIONS (2)
  - CHEST PAIN [None]
  - DYSPNOEA [None]
